FAERS Safety Report 5170474-X (Version None)
Quarter: 2006Q4

REPORT INFORMATION
  Report Type: 
  Country: None (occurrence: None)
  Receive Date: 20061204
  Receipt Date: 20061122
  Transmission Date: 20070319
  Serious: Yes (Other)
  Sender: FDA-Public Use
  Company Number: 2006144146

PATIENT
  Age: 82 Year
  Sex: Female
  Weight: 45 kg

DRUGS (7)
  1. CELEBREX [Suspect]
     Indication: BACK PAIN
     Dosage: 400 MG (200 MG)
  2. DYNASTAT [Suspect]
     Indication: BACK PAIN
     Dosage: 40 MG (40 MG, TOTAL), INTRAVENOUS
     Route: 042
     Dates: start: 20061116, end: 20061116
  3. ENVACAR                                   (GUANOXAN SULFATE) [Concomitant]
  4. ASPILETS                (ACETYLSALICYLIC ACID) [Concomitant]
  5. LOSARTAN POTASSIUM [Concomitant]
  6. NEUROBION                   (CYANOCOBALAMIN, PYRIDOXINE HCL, THIAMINE [Concomitant]
  7. FERROUS SULFATE TAB [Concomitant]

REACTIONS (9)
  - AGITATION [None]
  - BACK PAIN [None]
  - CONFUSIONAL STATE [None]
  - DELUSION [None]
  - DISORIENTATION [None]
  - EUPHORIC MOOD [None]
  - FALL [None]
  - INSOMNIA [None]
  - THERAPY NON-RESPONDER [None]
